FAERS Safety Report 25569545 (Version 1)
Quarter: 2025Q3

REPORT INFORMATION
  Report Type: Spontaneous
  Country: MX (occurrence: MX)
  Receive Date: 20250716
  Receipt Date: 20250716
  Transmission Date: 20251021
  Serious: Yes (Death, Hospitalization, Other)
  Sender: APOTEX
  Company Number: MX-APOTEX-2025AP010134

PATIENT
  Age: 62 Year
  Sex: Male

DRUGS (5)
  1. LEFLUNOMIDE [Suspect]
     Active Substance: LEFLUNOMIDE
     Indication: Antisynthetase syndrome
     Route: 065
  2. RITUXIMAB [Suspect]
     Active Substance: RITUXIMAB
     Indication: Antisynthetase syndrome
     Route: 065
  3. METHOTREXATE [Suspect]
     Active Substance: METHOTREXATE
     Indication: Antisynthetase syndrome
     Route: 065
  4. PREDNISONE [Suspect]
     Active Substance: PREDNISONE
     Indication: Antisynthetase syndrome
     Route: 065
  5. NINTEDANIB [Suspect]
     Active Substance: NINTEDANIB
     Indication: Antisynthetase syndrome
     Route: 065

REACTIONS (5)
  - Lung adenocarcinoma stage IV [Fatal]
  - Seizure [Fatal]
  - Brain oedema [Fatal]
  - Brain herniation [Fatal]
  - Thrombotic stroke [Fatal]

NARRATIVE: CASE EVENT DATE: 20240101
